FAERS Safety Report 9345468 (Version 1)
Quarter: 2013Q2

REPORT INFORMATION
  Report Type: Spontaneous
  Country: US (occurrence: US)
  Receive Date: 20130613
  Receipt Date: 20130613
  Transmission Date: 20140414
  Serious: No
  Sender: FDA-Public Use
  Company Number: US-B.I. PHARMACEUTICALS,INC./RIDGEFIELD-2013-BI-16298BP

PATIENT
  Age: 60 Year
  Sex: Female
  Weight: 86 kg

DRUGS (10)
  1. COMBIVENT [Suspect]
     Indication: CHRONIC OBSTRUCTIVE PULMONARY DISEASE
     Dosage: STRENGTH: 20 MCG / 100 MCG; DAILY DOSE: 80 MCG/ 400 MCG
     Route: 055
     Dates: start: 20130605
  2. MELOXICAM [Concomitant]
     Indication: OSTEOARTHRITIS
     Dosage: 15 MG
     Route: 048
  3. RANITIDINE [Concomitant]
     Dosage: 300 MG
     Route: 048
  4. LORATADINE [Concomitant]
     Indication: SEASONAL ALLERGY
     Dosage: 10 MG
     Route: 048
  5. ACYCLOVIR [Concomitant]
     Indication: HERPES ZOSTER
     Dosage: 800 MG
     Route: 048
  6. DIAZEPAM [Concomitant]
     Indication: ANXIETY
     Dosage: 10 MG
     Route: 048
  7. FLEXERIL [Concomitant]
     Indication: NECK INJURY
     Dosage: 15 MG
     Route: 048
  8. ATORVASTATIN [Concomitant]
     Indication: BLOOD CHOLESTEROL INCREASED
     Dosage: 10 MG
     Route: 048
  9. VITAMIN D [Concomitant]
     Route: 048
  10. HYDROCODONE [Concomitant]
     Indication: NECK INJURY
     Dosage: STRENGTH: 7.5/325 MG; DAILY DOSE: 22.5/975 MG
     Route: 048

REACTIONS (2)
  - Choking [Not Recovered/Not Resolved]
  - Dyspnoea [Not Recovered/Not Resolved]
